FAERS Safety Report 17171284 (Version 1)
Quarter: 2019Q4

REPORT INFORMATION
  Report Type: Spontaneous
  Country: US (occurrence: US)
  Receive Date: 20191218
  Receipt Date: 20191218
  Transmission Date: 20200122
  Serious: No
  Sender: FDA-Public Use
  Company Number: US-SUPERNUS PHARMACEUTICALS, INC.-2018SUP00356

PATIENT
  Age: 57 Year
  Sex: Female
  Weight: 100.68 kg

DRUGS (15)
  1. TROKENDI XR [Suspect]
     Active Substance: TOPIRAMATE
     Indication: MIGRAINE
     Dosage: 100 MG, 1X/DAY
     Route: 048
     Dates: start: 20180730
  2. CYCLOBENZAPRINE. [Concomitant]
     Active Substance: CYCLOBENZAPRINE
  3. MONTELUKAST [Concomitant]
     Active Substance: MONTELUKAST SODIUM
  4. VITAMIN D [Concomitant]
     Active Substance: VITAMIN D NOS
  5. PROVENTIL [Concomitant]
     Active Substance: ALBUTEROL
  6. NASONEX [Concomitant]
     Active Substance: MOMETASONE FUROATE
  7. CETIRIZINE [Concomitant]
     Active Substance: CETIRIZINE HYDROCHLORIDE
  8. VERAPAMIL [Concomitant]
     Active Substance: VERAPAMIL HYDROCHLORIDE
  9. MULTIVITAMIN (CALCIUM, MAGNESIUM, ZINC) [Concomitant]
  10. PATADAY [Concomitant]
     Active Substance: OLOPATADINE HYDROCHLORIDE
  11. FUROSEMIDE. [Concomitant]
     Active Substance: FUROSEMIDE
  12. MEPERIDINE [Concomitant]
     Active Substance: MEPERIDINE
  13. TRANDOLAPRIL. [Concomitant]
     Active Substance: TRANDOLAPRIL
  14. GABAPENTIN. [Concomitant]
     Active Substance: GABAPENTIN
  15. CELEBREX [Concomitant]
     Active Substance: CELECOXIB

REACTIONS (1)
  - Alopecia [Not Recovered/Not Resolved]

NARRATIVE: CASE EVENT DATE: 201811
